FAERS Safety Report 24379581 (Version 1)
Quarter: 2024Q3

REPORT INFORMATION
  Report Type: Spontaneous
  Country: US (occurrence: US)
  Receive Date: 20240930
  Receipt Date: 20240930
  Transmission Date: 20241017
  Serious: Yes (Other)
  Sender: INTRA-CELLULAR THERAPIES
  Company Number: US-INTRA-CELLULAR THERAPIES, INC.-2024ICT01517

PATIENT
  Age: 39 Year
  Sex: Male

DRUGS (1)
  1. CAPLYTA [Suspect]
     Active Substance: LUMATEPERONE
     Indication: Bipolar disorder
     Dosage: 10.5 MG, 1X/DAY
     Route: 048

REACTIONS (12)
  - Suicidal ideation [Recovered/Resolved]
  - Pain [Recovering/Resolving]
  - Chest pain [Recovering/Resolving]
  - Confusional state [Recovering/Resolving]
  - Irritability [Recovering/Resolving]
  - Intrusive thoughts [Recovering/Resolving]
  - Disturbance in attention [Recovering/Resolving]
  - Depression [Not Recovered/Not Resolved]
  - Musculoskeletal stiffness [Recovering/Resolving]
  - Headache [Recovering/Resolving]
  - Dizziness [Recovering/Resolving]
  - Nausea [Recovering/Resolving]

NARRATIVE: CASE EVENT DATE: 20240101
